FAERS Safety Report 6976455-5 (Version None)
Quarter: 2010Q3

REPORT INFORMATION
  Report Type: 
  Country: None (occurrence: None)
  Receive Date: 20100910
  Receipt Date: 20091210
  Transmission Date: 20110219
  Serious: No
  Sender: FDA-Public Use
  Company Number: US-TYCO HEALTHCARE/MALLINCKRODT-T200902316

PATIENT
  Sex: Female

DRUGS (6)
  1. ACETAMINOPHEN AND HYDROCODONE BITARTRATE [Suspect]
     Indication: PAIN
     Dosage: 1 Q4 PRN
     Route: 048
     Dates: start: 20090909, end: 20090919
  2. NORTRIPTYLINE HCL [Suspect]
     Indication: PAIN
     Dosage: 25 MG, QD AT BEDTIME
     Dates: start: 20090917
  3. RYZOLT [Suspect]
     Indication: PAIN
     Dosage: 100 MG, QD BEDTIME
     Dates: start: 20090917
  4. DURAGESIC-100 [Concomitant]
     Indication: PAIN
     Dosage: UNK
  5. ELAVIL [Concomitant]
     Indication: PAIN
     Dosage: 25 MG, UNK
  6. NEURONTIN [Concomitant]
     Indication: PAIN
     Dosage: 25 MG, UNK

REACTIONS (6)
  - DRUG INEFFECTIVE [None]
  - FEELING ABNORMAL [None]
  - FEELING HOT [None]
  - MEMORY IMPAIRMENT [None]
  - RASH [None]
  - SKIN EXFOLIATION [None]
